FAERS Safety Report 17188166 (Version 1)
Quarter: 2019Q4

REPORT INFORMATION
  Report Type: Spontaneous
  Country: SE (occurrence: SE)
  Receive Date: 20191221
  Receipt Date: 20191221
  Transmission Date: 20200122
  Serious: Yes (Hospitalization)
  Sender: FDA-Public Use
  Company Number: SE-TEVA-2019-SE-1154528

PATIENT
  Age: 41 Year
  Sex: Female

DRUGS (10)
  1. CISORDINOL 10 MG FILMDRAGERAD TABLETT [Suspect]
     Active Substance: ZUCLOPENTHIXOL
     Dosage: 3 TABL (30 MG)
     Route: 048
     Dates: start: 20181026, end: 20181026
  2. PREGABALIN. [Suspect]
     Active Substance: PREGABALIN
     Dosage: 6 TAB, 900 MG
     Route: 048
     Dates: start: 20181026, end: 20181026
  3. CAMPRAL [Suspect]
     Active Substance: ACAMPROSATE CALCIUM
     Dosage: 16 TABLETS(5328 MG), ENTEROTABLET
     Route: 048
     Dates: start: 20181026, end: 20181026
  4. LAMICTAL [Suspect]
     Active Substance: LAMOTRIGINE
     Dosage: 6 ST (600 MG)
     Route: 048
     Dates: start: 20181026, end: 20181026
  5. PROPAVAN [Suspect]
     Active Substance: PROPIOMAZINE
     Dosage: 20 TABLETS
     Route: 048
     Dates: start: 20181026, end: 20181026
  6. NALTREXONE [Suspect]
     Active Substance: NALTREXONE
     Dosage: 3 TABL (150 MG)
     Route: 048
     Dates: start: 20181026, end: 20181026
  7. OLANZAPINE. [Suspect]
     Active Substance: OLANZAPINE
     Dosage: 3 TABL (45 MG)
     Route: 048
     Dates: start: 20181026, end: 20181026
  8. ZOPICLONE [Suspect]
     Active Substance: ZOPICLONE
     Dosage: 3 TABL (22.5 MG)
     Route: 048
     Dates: start: 20181026, end: 20181026
  9. PREGABALIN. [Suspect]
     Active Substance: PREGABALIN
     Dosage: 6 TABL
     Route: 048
     Dates: start: 20181026, end: 20181026
  10. STESOLID 10 MG TABLETT [Suspect]
     Active Substance: DIAZEPAM
     Dosage: 3 TABL (30 MG)
     Route: 048
     Dates: start: 20181026, end: 20181026

REACTIONS (3)
  - Intentional overdose [Unknown]
  - Intentional self-injury [Unknown]
  - Depressed level of consciousness [Unknown]

NARRATIVE: CASE EVENT DATE: 20181026
